FAERS Safety Report 9848886 (Version 1)
Quarter: 2014Q1

REPORT INFORMATION
  Report Type: Spontaneous
  Country: US (occurrence: None)
  Receive Date: 20140127
  Receipt Date: 20140127
  Transmission Date: 20141002
  Serious: Yes (Other)
  Sender: FDA-Public Use
  Company Number: None

PATIENT
  Age: 52 Year
  Sex: Female
  Weight: 63.5 kg

DRUGS (1)
  1. WELLBUTRIN [Suspect]
     Indication: DEPRESSION
     Dates: start: 20130715, end: 20140123

REACTIONS (12)
  - Depression [None]
  - Confusional state [None]
  - Nightmare [None]
  - Sleep terror [None]
  - Hyperhidrosis [None]
  - Suicidal ideation [None]
  - Amnesia [None]
  - Enuresis [None]
  - Anxiety [None]
  - Feeling of body temperature change [None]
  - Dysgeusia [None]
  - Paranoia [None]
